FAERS Safety Report 8315672-9 (Version None)
Quarter: 2012Q2

REPORT INFORMATION
  Report Type: 
  Country: None (occurrence: None)
  Receive Date: 20120426
  Receipt Date: 20120417
  Transmission Date: 20120825
  Serious: Yes (Other)
  Sender: FDA-Public Use
  Company Number: AR-ABBOTT-12P-007-0917511-00

PATIENT
  Sex: Male
  Weight: 86 kg

DRUGS (4)
  1. HUMIRA [Suspect]
     Indication: ANAL FISTULA
     Dosage: INDUCTION DOSE
  2. HUMIRA [Suspect]
     Dosage: TWO DOSES
  3. INFLIXIMAB [Concomitant]
     Indication: PRODUCT USED FOR UNKNOWN INDICATION
  4. HUMIRA [Suspect]
     Indication: CROHN'S DISEASE
     Route: 058
     Dates: start: 20120104, end: 20120224

REACTIONS (3)
  - ORAL DISORDER [None]
  - TOOTHACHE [None]
  - TONGUE NEOPLASM MALIGNANT STAGE UNSPECIFIED [None]
